FAERS Safety Report 24350800 (Version 1)
Quarter: 2024Q3

REPORT INFORMATION
  Report Type: Spontaneous
  Country: PL (occurrence: PL)
  Receive Date: 20240923
  Receipt Date: 20240923
  Transmission Date: 20241017
  Serious: No
  Sender: ROCHE
  Company Number: None

PATIENT
  Age: 58 Year
  Sex: Female
  Weight: 46.0 kg

DRUGS (3)
  1. HERCEPTIN [Suspect]
     Active Substance: TRASTUZUMAB
     Indication: Plasma cell myeloma
     Dosage: EXP: 2021/12/31
     Route: 065
     Dates: start: 20200721
  2. PERJETA [Suspect]
     Active Substance: PERTUZUMAB
     Indication: Breast cancer
     Dosage: EXP: 2021/05/31; 2022/07/31
     Route: 065
     Dates: start: 20200721
  3. DOCETAXEL [Suspect]
     Active Substance: DOCETAXEL\DOCETAXEL ANHYDROUS
     Indication: Plasma cell myeloma
     Dosage: EXP: 2021/05/31; 2021/05/31
     Route: 065
     Dates: start: 20200721

REACTIONS (4)
  - Asthenia [Recovering/Resolving]
  - Anaemia [Recovering/Resolving]
  - Alopecia [Recovering/Resolving]
  - Hyponatraemia [Recovering/Resolving]

NARRATIVE: CASE EVENT DATE: 20201105
